FAERS Safety Report 9364521 (Version 3)
Quarter: 2014Q3

REPORT INFORMATION
  Report Type: Report from Study
  Country: US (occurrence: US)
  Receive Date: 20130624
  Receipt Date: 20140915
  Transmission Date: 20150326
  Serious: Yes (Hospitalization)
  Sender: FDA-Public Use
  Company Number: US-PFIZER INC-2013183780

PATIENT
  Age: 29 Year
  Sex: Male
  Weight: 116.1 kg

DRUGS (39)
  1. DEXAMETHASONE SODIUM PHOSPHATE [Suspect]
     Active Substance: DEXAMETHASONE SODIUM PHOSPHATE
     Dosage: 4 MG, TID FOR BRAIN METS
     Route: 048
     Dates: start: 20120824
  2. CETIRIZINE [Concomitant]
     Active Substance: CETIRIZINE HYDROCHLORIDE
     Indication: SINUS CONGESTION
     Dosage: UNK
     Dates: start: 201010
  3. TESTOSTERONE CYPIONATE. [Concomitant]
     Active Substance: TESTOSTERONE CYPIONATE
     Indication: ANDROGEN DEFICIENCY
     Dosage: UNK
     Dates: start: 20110203, end: 20110524
  4. TESTOSTERONE. [Concomitant]
     Active Substance: TESTOSTERONE
     Indication: ANDROGEN DEFICIENCY
     Dosage: UNK
     Dates: start: 20110712, end: 20110908
  5. LOTRISONE [Concomitant]
     Active Substance: BETAMETHASONE DIPROPIONATE\CLOTRIMAZOLE
     Indication: TINEA INFECTION
     Dosage: UNK
     Dates: start: 20110510
  6. BACTRIM [Concomitant]
     Active Substance: SULFAMETHOXAZOLE\TRIMETHOPRIM
     Indication: CELLULITIS
     Dosage: UNK
     Dates: start: 20120620, end: 20120704
  7. SALICYLIC ACID [Concomitant]
     Active Substance: SALICYLIC ACID
     Indication: ECCHYMOSIS
     Dosage: UNK
     Dates: start: 20120802
  8. WARFARIN [Concomitant]
     Active Substance: WARFARIN
     Indication: PULMONARY EMBOLISM
     Dosage: UNK
     Dates: start: 201010
  9. CYANOCOBALAMIN. [Concomitant]
     Active Substance: CYANOCOBALAMIN
     Indication: SUPPLEMENTATION THERAPY
     Dosage: UNK
     Dates: start: 20110128, end: 20110310
  10. TESTOSTERONE CYPIONATE. [Concomitant]
     Active Substance: TESTOSTERONE CYPIONATE
     Dosage: UNK
     Dates: start: 20120802, end: 20120802
  11. DEXAMETHASONE SODIUM PHOSPHATE [Suspect]
     Active Substance: DEXAMETHASONE SODIUM PHOSPHATE
     Indication: METASTASES TO CENTRAL NERVOUS SYSTEM
     Dosage: 1 MG, DOSAGE INCREASED, FOR SEIZURE PROPHYLAXIS
     Dates: start: 20110624, end: 20120501
  12. DEXAMETHASONE SODIUM PHOSPHATE [Suspect]
     Active Substance: DEXAMETHASONE SODIUM PHOSPHATE
     Dosage: 4 MG, TID FOR BRAIN METS
     Route: 048
     Dates: start: 20120501, end: 20120823
  13. CYANOCOBALAMIN. [Concomitant]
     Active Substance: CYANOCOBALAMIN
     Dosage: UNK
     Dates: start: 20120717, end: 20120717
  14. KEPPRA [Concomitant]
     Active Substance: LEVETIRACETAM
     Indication: PROPHYLAXIS
     Dosage: UNK
     Dates: start: 20110316, end: 20110624
  15. CYMBALTA [Concomitant]
     Active Substance: DULOXETINE HYDROCHLORIDE
     Indication: NEUROPATHY PERIPHERAL
  16. KEFLEX [Concomitant]
     Active Substance: CEPHALEXIN
     Indication: CELLULITIS
     Dosage: UNK
     Dates: start: 20120605, end: 20120615
  17. CORTOMYCIN [Concomitant]
     Active Substance: BACITRACIN ZINC\HYDROCORTISONE\NEOMYCIN SULFATE\POLYMYXIN B SULFATE
     Indication: CERUMEN IMPACTION
     Dosage: UNK
     Dates: start: 20120712, end: 20120719
  18. VANCOMYCIN [Concomitant]
     Active Substance: VANCOMYCIN
     Indication: CELLULITIS
     Dosage: UNK
     Dates: start: 20120627, end: 20120717
  19. CYMBALTA [Concomitant]
     Active Substance: DULOXETINE HYDROCHLORIDE
     Indication: DEPRESSION
     Dosage: UNK
     Dates: start: 20110820, end: 20120621
  20. MELATONIN [Concomitant]
     Active Substance: MELATONIN
     Indication: INSOMNIA
     Dosage: UNK
     Dates: start: 20110101
  21. CORTISPORIN SOLUTION [Concomitant]
     Indication: CERUMEN IMPACTION
     Dosage: UNK
     Dates: start: 20120813, end: 20120823
  22. FUROSEMIDE. [Concomitant]
     Active Substance: FUROSEMIDE
     Indication: OEDEMA PERIPHERAL
     Dosage: PRN
     Dates: start: 20110510
  23. CYMBALTA [Concomitant]
     Active Substance: DULOXETINE HYDROCHLORIDE
     Indication: ANXIETY
  24. OMEPRAZOLE. [Concomitant]
     Active Substance: OMEPRAZOLE
     Indication: DYSPEPSIA
     Dosage: UNK
     Dates: start: 201010
  25. CYANOCOBALAMIN. [Concomitant]
     Active Substance: CYANOCOBALAMIN
     Dosage: UNK
     Dates: start: 20120802, end: 20120802
  26. KEPPRA [Concomitant]
     Active Substance: LEVETIRACETAM
     Dosage: DOSAGE INCREASED
     Dates: start: 20110624
  27. TESTOSTERONE. [Concomitant]
     Active Substance: TESTOSTERONE
     Dosage: UNK
     Dates: start: 20120201, end: 20120201
  28. GREEN GODDESS SUPPLEMENT (NFI) [Concomitant]
     Indication: SUPPLEMENTATION THERAPY
     Dosage: UNK
     Dates: start: 20110128
  29. INVANZ [Concomitant]
     Active Substance: ERTAPENEM SODIUM
     Indication: CELLULITIS
     Dosage: UNK
     Dates: start: 20120815, end: 20120828
  30. DEXAMETHASONE SODIUM PHOSPHATE [Suspect]
     Active Substance: DEXAMETHASONE SODIUM PHOSPHATE
     Indication: PROPHYLAXIS
     Dosage: FOR SEIZURE PROPHYLAXIS
     Dates: start: 20110203, end: 20110620
  31. WARFARIN [Concomitant]
     Active Substance: WARFARIN
     Indication: EMBOLISM VENOUS
  32. VICODIN [Concomitant]
     Active Substance: ACETAMINOPHEN\HYDROCODONE BITARTRATE
     Indication: BONE PAIN
     Dosage: UNK
     Dates: start: 201010
  33. SENNA PLUS [Concomitant]
     Active Substance: DOCUSATE SODIUM\SENNOSIDES\SENNOSIDES A AND B
     Indication: CONSTIPATION
     Dosage: UNK
     Dates: start: 201010
  34. FOLIC ACID. [Concomitant]
     Active Substance: FOLIC ACID
     Indication: VITAMIN SUPPLEMENTATION
     Dosage: UNK
     Dates: start: 20110128
  35. AUGMENTIN [Concomitant]
     Active Substance: AMOXICILLIN\CLAVULANATE POTASSIUM
     Indication: UPPER RESPIRATORY TRACT INFECTION
     Dosage: UNK
     Dates: start: 20110420, end: 20110427
  36. CLINDAMYCIN [Concomitant]
     Active Substance: CLINDAMYCIN\CLINDAMYCIN PHOSPHATE
     Indication: CELLULITIS
     Dosage: UNK
     Dates: start: 20120614, end: 20120704
  37. CRIZOTINIB [Suspect]
     Active Substance: CRIZOTINIB
     Indication: NON-SMALL CELL LUNG CANCER
     Dosage: 250 MG, TWICE DAILY
     Route: 048
     Dates: start: 20110407
  38. MORPHINE SULFATE. [Concomitant]
     Active Substance: MORPHINE SULFATE
     Indication: BONE PAIN
     Dosage: UNK
     Dates: start: 201010
  39. MYCELEX TROCHE [Concomitant]
     Indication: ORAL CANDIDIASIS
     Dosage: UNK
     Dates: start: 20110519, end: 20110528

REACTIONS (1)
  - Cellulitis [Recovered/Resolved]

NARRATIVE: CASE EVENT DATE: 20130616
